FAERS Safety Report 8064544-6 (Version None)
Quarter: 2012Q1

REPORT INFORMATION
  Report Type: 
  Country: None (occurrence: None)
  Receive Date: 20120123
  Receipt Date: 20120118
  Transmission Date: 20120608
  Serious: Yes (Other)
  Sender: FDA-Public Use
  Company Number: US-ABBOTT-12P-163-0895010-00

PATIENT
  Sex: Female

DRUGS (1)
  1. HUMIRA [Suspect]
     Indication: PRODUCT USED FOR UNKNOWN INDICATION

REACTIONS (4)
  - JOINT ARTHROPLASTY [None]
  - QUALITY OF LIFE DECREASED [None]
  - KNEE ARTHROPLASTY [None]
  - STAPHYLOCOCCAL INFECTION [None]
